FAERS Safety Report 8779183 (Version 1)
Quarter: 2012Q4

REPORT INFORMATION
  Report Type: 
  Country: US (occurrence: US)
  Receive Date: 20120912
  Receipt Date: 20120912
  Transmission Date: 20130627
  Serious: No
  Sender: FDA-Public Use
  Company Number: US-BIOGENIDEC-2012BI036107

PATIENT
  Age: 28 Year
  Sex: Female

DRUGS (3)
  1. TYSABRI [Suspect]
     Indication: MULTIPLE SCLEROSIS
     Route: 042
     Dates: start: 20090529
  2. BENADRYL [Concomitant]
     Indication: PREMEDICATION
     Dates: start: 2009
  3. PREDNISOSE [Concomitant]
     Indication: PREMEDICATION
     Dates: start: 2009

REACTIONS (1)
  - Wound infection [Not Recovered/Not Resolved]
